FAERS Safety Report 5320612-0 (Version None)
Quarter: 2007Q1

REPORT INFORMATION
  Report Type: 
  Country: None (occurrence: None)
  Receive Date: 20070209
  Receipt Date: 20061031
  Transmission Date: 20070707
  Serious: No
  Sender: FDA-Public Use
  Company Number: 200619833US

PATIENT
  Sex: Female

DRUGS (1)
  1. APIDRA [Suspect]
     Dosage: INJ
     Route: 042

REACTIONS (2)
  - DECREASED APPETITE [None]
  - WEIGHT DECREASED [None]
